FAERS Safety Report 12059756 (Version 2)
Quarter: 2016Q1

REPORT INFORMATION
  Report Type: Spontaneous
  Country: US (occurrence: US)
  Receive Date: 20160210
  Receipt Date: 20160225
  Transmission Date: 20160526
  Serious: No
  Sender: FDA-Public Use
  Company Number: US-JNJFOC-20160206345

PATIENT
  Sex: Female

DRUGS (2)
  1. DURAGESIC [Suspect]
     Active Substance: FENTANYL
     Indication: PRODUCT USED FOR UNKNOWN INDICATION
     Route: 062
     Dates: start: 2015
  2. DURAGESIC [Suspect]
     Active Substance: FENTANYL
     Indication: PRODUCT USED FOR UNKNOWN INDICATION
     Route: 062
     Dates: start: 201311, end: 2015

REACTIONS (7)
  - Adverse drug reaction [Unknown]
  - Logorrhoea [Unknown]
  - Insomnia [Unknown]
  - Hypersomnia [Unknown]
  - Inappropriate schedule of drug administration [Unknown]
  - Lethargy [Unknown]
  - Euphoric mood [Unknown]

NARRATIVE: CASE EVENT DATE: 2015
